APPROVED DRUG PRODUCT: XELPROS
Active Ingredient: LATANOPROST
Strength: 0.005%
Dosage Form/Route: EMULSION;OPHTHALMIC
Application: N206185 | Product #001
Applicant: SUN PHARMACEUTICAL INDUSTRIES LTD
Approved: Sep 12, 2018 | RLD: Yes | RS: No | Type: DISCN

PATENTS:
Patent 9539262 | Expires: Oct 15, 2028
Patent 9629852 | Expires: Sep 12, 2029